FAERS Safety Report 5531793-8 (Version None)
Quarter: 2007Q4

REPORT INFORMATION
  Report Type: 
  Country: None (occurrence: None)
  Receive Date: 20071128
  Receipt Date: 20071128
  Transmission Date: 20080405
  Serious: Yes (Life-Threatening)
  Sender: FDA-Public Use
  Company Number: None

PATIENT
  Age: 62 Year
  Sex: Female
  Weight: 93 kg

DRUGS (1)
  1. MORPHINE [Suspect]
     Indication: PROCEDURAL PAIN
     Dosage: 1.2 MG 10 MIN LOCKOUT IV
     Route: 042
     Dates: start: 20070711, end: 20070711

REACTIONS (4)
  - CARDIO-RESPIRATORY ARREST [None]
  - INADEQUATE ANALGESIA [None]
  - PALLOR [None]
  - UNRESPONSIVE TO STIMULI [None]
